FAERS Safety Report 5387363-8 (Version None)
Quarter: 2007Q3

REPORT INFORMATION
  Report Type: 
  Country: None (occurrence: None)
  Receive Date: 20070716
  Receipt Date: 20070709
  Transmission Date: 20080115
  Serious: Yes (Hospitalization)
  Sender: FDA-Public Use
  Company Number: JP-BRISTOL-MYERS SQUIBB COMPANY-13844980

PATIENT
  Age: 5 Decade
  Sex: Male

DRUGS (5)
  1. ENDOXAN [Suspect]
     Indication: LYMPHOMA
     Route: 048
     Dates: start: 20061024
  2. VINCRISTINE SULFATE [Suspect]
     Indication: LYMPHOMA
     Dates: start: 20061024
  3. PREDONINE [Suspect]
     Indication: LYMPHOMA
     Route: 048
     Dates: start: 20061024
  4. ADRIAMYCIN PFS [Suspect]
     Indication: LYMPHOMA
     Dates: start: 20061024
  5. RITUXIMAB [Suspect]
     Indication: LYMPHOMA
     Dates: start: 20061024

REACTIONS (4)
  - HEPATIC ENZYME INCREASED [None]
  - HEPATITIS C [None]
  - JAUNDICE [None]
  - LIVER DISORDER [None]
